FAERS Safety Report 15208316 (Version 4)
Quarter: 2018Q3

REPORT INFORMATION
  Report Type: Spontaneous
  Country: US (occurrence: US)
  Receive Date: 20180727
  Receipt Date: 20180917
  Transmission Date: 20181010
  Serious: Yes (Hospitalization)
  Sender: FDA-Public Use
  Company Number: US-PFIZER INC-2018297914

PATIENT
  Age: 27 Year
  Sex: Male

DRUGS (3)
  1. GABAPENTIN. [Suspect]
     Active Substance: GABAPENTIN
     Dosage: 3600 MG (6 X 600 MG TABS OF GABAPENTIN)
  2. NALOXONE HCL [Interacting]
     Active Substance: NALOXONE HYDROCHLORIDE
     Dosage: 2 MG, 2X/DAY
  3. BUPRENORPHINE. [Interacting]
     Active Substance: BUPRENORPHINE
     Dosage: 8 MG, 2X/DAY

REACTIONS (3)
  - Drug interaction [Unknown]
  - Drug abuse [Unknown]
  - Depressed level of consciousness [Unknown]
